FAERS Safety Report 10360060 (Version 2)
Quarter: 2014Q3

REPORT INFORMATION
  Report Type: Report from Study
  Country: KR (occurrence: KR)
  Receive Date: 20140804
  Receipt Date: 20140902
  Transmission Date: 20150326
  Serious: Yes (Death, Hospitalization)
  Sender: FDA-Public Use
  Company Number: KR-CELGENEUS-286-50794-14073467

PATIENT
  Age: 73 Year
  Sex: Male
  Weight: 60 kg

DRUGS (4)
  1. VIDAZA [Suspect]
     Active Substance: AZACITIDINE
     Dosage: 165 MILLIGRAM
     Route: 050
     Dates: start: 20130122, end: 20130128
  2. FLUCONAZOLE. [Concomitant]
     Active Substance: FLUCONAZOLE
     Indication: PROPHYLAXIS
     Dosage: 800 MILLIGRAM
     Route: 048
     Dates: start: 20130122, end: 20130205
  3. VIDAZA [Suspect]
     Active Substance: AZACITIDINE
     Dosage: 164 MILLIGRAM
     Route: 050
     Dates: start: 20130219, end: 20130226
  4. VIDAZA [Suspect]
     Active Substance: AZACITIDINE
     Indication: MYELODYSPLASTIC SYNDROME
     Dosage: 124 MILLIGRAM
     Route: 050
     Dates: start: 20120717

REACTIONS (7)
  - Pyrexia [Recovered/Resolved]
  - Ileus [Recovered/Resolved]
  - Ileus [Recovered/Resolved]
  - Pneumonia [Fatal]
  - Pyrexia [Recovered/Resolved]
  - Pyrexia [Recovered/Resolved]
  - Pyrexia [Recovered/Resolved]

NARRATIVE: CASE EVENT DATE: 20130128
